FAERS Safety Report 19886121 (Version 3)
Quarter: 2021Q4

REPORT INFORMATION
  Report Type: Spontaneous
  Country: US (occurrence: US)
  Receive Date: 20210927
  Receipt Date: 20211217
  Transmission Date: 20220303
  Serious: Yes (Other)
  Sender: FDA-Public Use
  Company Number: US-PFIZER INC-202101199398

PATIENT
  Age: 66 Year
  Sex: Female
  Weight: 95.238 kg

DRUGS (4)
  1. METOPROLOL TARTRATE [Suspect]
     Active Substance: METOPROLOL TARTRATE
     Indication: Blood pressure measurement
     Dosage: 100 MG, 1X/DAY
     Dates: start: 20190823
  2. MELOXICAM [Concomitant]
     Active Substance: MELOXICAM
     Dosage: UNK
     Dates: start: 2019
  3. TYLENOL PM [Concomitant]
     Active Substance: ACETAMINOPHEN\DIPHENHYDRAMINE
     Dosage: UNK
     Dates: start: 2015
  4. FLUOXETINE [Concomitant]
     Active Substance: FLUOXETINE HYDROCHLORIDE
     Dosage: UNK

REACTIONS (1)
  - Hallucination [Recovered/Resolved]

NARRATIVE: CASE EVENT DATE: 20200301
